FAERS Safety Report 4417600-5 (Version None)
Quarter: 2004Q3

REPORT INFORMATION
  Report Type: 
  Country: None (occurrence: None)
  Receive Date: 20040803
  Receipt Date: 20040701
  Transmission Date: 20050211
  Serious: Yes (Death)
  Sender: FDA-Public Use
  Company Number: 24614

PATIENT
  Age: 83 Year
  Sex: Male

DRUGS (1)
  1. ALDARA [Suspect]
     Indication: BASAL CELL CARCINOMA
     Dosage: 3 IN 1 WEEK (S) TOPICAL
     Route: 061
     Dates: start: 20030505

REACTIONS (1)
  - DEATH [None]
